FAERS Safety Report 6879396-7 (Version None)
Quarter: 2010Q3

REPORT INFORMATION
  Report Type: 
  Country: None (occurrence: None)
  Receive Date: 20100728
  Receipt Date: 20091028
  Transmission Date: 20110219
  Serious: No
  Sender: FDA-Public Use
  Company Number: US-ABBOTT-09P-163-0606026-00

PATIENT
  Sex: Female
  Weight: 86.26 kg

DRUGS (2)
  1. SYNTHROID [Suspect]
     Indication: HYPOTHYROIDISM
     Route: 048
     Dates: start: 20040101, end: 20040101
  2. SYNTHROID [Suspect]
     Route: 048
     Dates: start: 20090401

REACTIONS (4)
  - ARTHRALGIA [None]
  - BURNING SENSATION [None]
  - MYALGIA [None]
  - PAIN IN EXTREMITY [None]
